FAERS Safety Report 7990699-5 (Version None)
Quarter: 2011Q4

REPORT INFORMATION
  Report Type: 
  Country: None (occurrence: None)
  Receive Date: 20111219
  Receipt Date: 20111219
  Transmission Date: 20120403
  Serious: No
  Sender: FDA-Public Use
  Company Number: None

PATIENT
  Age: 48 Year
  Sex: Female
  Weight: 95 kg

DRUGS (1)
  1. TELAVANCIN HYDROCHLORIDE [Suspect]
     Dosage: 1000 MG
     Route: 041
     Dates: start: 20111101, end: 20111210

REACTIONS (2)
  - DEAFNESS [None]
  - BACK PAIN [None]
